FAERS Safety Report 4355910-0 (Version None)
Quarter: 2004Q2

REPORT INFORMATION
  Report Type: 
  Country: None (occurrence: None)
  Receive Date: 20040510
  Receipt Date: 20040510
  Transmission Date: 20050107
  Serious: Yes (Disabling)
  Sender: FDA-Public Use
  Company Number: None

PATIENT
  Age: 28 Year
  Sex: Male
  Weight: 77.1115 kg

DRUGS (1)
  1. PROZAC [Suspect]
     Indication: DEPRESSION

REACTIONS (8)
  - HYPEREXPLEXIA [None]
  - IMPAIRED WORK ABILITY [None]
  - INSOMNIA [None]
  - PHOBIA OF DRIVING [None]
  - PSYCHOMOTOR HYPERACTIVITY [None]
  - SOCIAL PROBLEM [None]
  - TREMOR [None]
  - WEIGHT DECREASED [None]
